FAERS Safety Report 13345864 (Version 1)
Quarter: 2017Q1

REPORT INFORMATION
  Report Type: Spontaneous
  Country: US (occurrence: US)
  Receive Date: 20170317
  Receipt Date: 20170317
  Transmission Date: 20170428
  Serious: Yes (Life-Threatening, Hospitalization, Disabling, Other)
  Sender: FDA-Public Use
  Company Number: None

PATIENT
  Age: 58 Year
  Sex: Female
  Weight: 80.81 kg

DRUGS (13)
  1. LORAZEPAM. [Concomitant]
     Active Substance: LORAZEPAM
  2. NE POLYBROM [Concomitant]
  3. VATTREX [Concomitant]
  4. PROPRANOL [Concomitant]
     Active Substance: PROPRANOLOL HYDROCHLORIDE
  5. HAIR, SKIN + NAILS [Concomitant]
     Active Substance: MINERALS\VITAMINS
  6. MUCINEX [Concomitant]
     Active Substance: GUAIFENESIN
  7. AUGMENTIN [Concomitant]
     Active Substance: AMOXICILLIN\CLAVULANATE POTASSIUM
  8. MECLIZINE [Concomitant]
     Active Substance: MECLIZINE HYDROCHLORIDE
  9. CEFTIN [Concomitant]
     Active Substance: CEFUROXIME AXETIL
  10. GABAPENTIN. [Suspect]
     Active Substance: GABAPENTIN
     Indication: DEPRESSION
     Dosage: ?          QUANTITY:L UP.?.IST_ANY RELFI?VANT;?
     Route: 048
     Dates: start: 20170208, end: 20170211
  11. GABAPENTIN. [Suspect]
     Active Substance: GABAPENTIN
     Indication: FIBROMYALGIA
     Dosage: ?          QUANTITY:L UP.?.IST_ANY RELFI?VANT;?
     Route: 048
     Dates: start: 20170208, end: 20170211
  12. ZOLOFT [Concomitant]
     Active Substance: SERTRALINE HYDROCHLORIDE
  13. CLARITIN [Concomitant]
     Active Substance: LORATADINE

REACTIONS (14)
  - Amnesia [None]
  - Abdominal pain upper [None]
  - Chest pain [None]
  - Bronchitis [None]
  - Dyspnoea [None]
  - Myalgia [None]
  - Speech disorder [None]
  - Upper respiratory tract infection [None]
  - Deafness [None]
  - Multiple allergies [None]
  - Mental impairment [None]
  - Confusional state [None]
  - Feeling hot [None]
  - Rhinorrhoea [None]

NARRATIVE: CASE EVENT DATE: 20170208
